FAERS Safety Report 4489593-6 (Version None)
Quarter: 2004Q4

REPORT INFORMATION
  Report Type: 
  Country: None (occurrence: None)
  Receive Date: 20041026
  Receipt Date: 20041012
  Transmission Date: 20050328
  Serious: Yes (Other)
  Sender: FDA-Public Use
  Company Number: GBS040915629

PATIENT
  Age: 11 Year
  Sex: Female
  Weight: 17.6903 kg

DRUGS (1)
  1. HUMALOG [Suspect]
     Indication: DIABETES MELLITUS INSULIN-DEPENDENT
     Dosage: 31 U DAY
     Dates: start: 20040822, end: 20040824

REACTIONS (4)
  - ACTIVITIES OF DAILY LIVING IMPAIRED [None]
  - DIPLOPIA [None]
  - PHOTOPHOBIA [None]
  - VISION BLURRED [None]
